FAERS Safety Report 7092493-9 (Version None)
Quarter: 2010Q4

REPORT INFORMATION
  Report Type: 
  Country: None (occurrence: None)
  Receive Date: 20101108
  Receipt Date: 20101108
  Transmission Date: 20110411
  Serious: Yes (Other)
  Sender: FDA-Public Use
  Company Number: None

PATIENT
  Age: 46 Year
  Sex: Female
  Weight: 69.8539 kg

DRUGS (2)
  1. TRILEPTAL [Suspect]
     Indication: TRIGEMINAL NEURALGIA
     Dosage: 600MG X2 DAILY PO
     Route: 048
  2. TRILEPTAL [Suspect]

REACTIONS (3)
  - FEELING ABNORMAL [None]
  - PRODUCT QUALITY ISSUE [None]
  - SLEEP DISORDER [None]
